FAERS Safety Report 9226945 (Version 5)
Quarter: 2013Q3

REPORT INFORMATION
  Report Type: Spontaneous
  Country: US (occurrence: US)
  Receive Date: 20130412
  Receipt Date: 20130830
  Transmission Date: 20140515
  Serious: No
  Sender: FDA-Public Use
  Company Number: US-BIOGENIDEC-2013BI031748

PATIENT
  Age: 54 Year
  Sex: Female

DRUGS (1)
  1. TYSABRI [Suspect]
     Indication: MULTIPLE SCLEROSIS
     Route: 042
     Dates: start: 20121108, end: 20130618

REACTIONS (14)
  - Vulvovaginal mycotic infection [Unknown]
  - Depression [Unknown]
  - Diarrhoea [Unknown]
  - Micturition urgency [Unknown]
  - Muscular weakness [Unknown]
  - Abdominal pain [Unknown]
  - Sinusitis [Not Recovered/Not Resolved]
  - Fatigue [Unknown]
  - Constipation [Unknown]
  - Upper respiratory tract infection [Unknown]
  - Malaise [Unknown]
  - Nausea [Unknown]
  - Vomiting [Unknown]
  - Rash [Unknown]
